FAERS Safety Report 9560251 (Version 1)
Quarter: 2013Q3

REPORT INFORMATION
  Report Type: Spontaneous
  Country: US (occurrence: None)
  Receive Date: 20130909
  Receipt Date: 20130909
  Transmission Date: 20140515
  Serious: Yes (Other)
  Sender: FDA-Public Use
  Company Number: 380618

PATIENT
  Age: 59 Year
  Sex: 0

DRUGS (12)
  1. VICTOZA (LIRAGLUTIDE) SOLUTION FOR INJECTION, 6MG/ML [Suspect]
     Indication: DIABETES MELLITUS
     Route: 058
  2. METFORMIN HCL [Concomitant]
  3. METRONIDAZOLE [Concomitant]
  4. ASPIRIN (ACETYLSALICYLIC ACID) [Concomitant]
  5. SYNTHROID (LEVOTHYROXINE SODIUM) [Concomitant]
  6. ZOCOR (SIMVASTATIN) [Concomitant]
  7. TRILIPIX (CHOLINE FENOFIBRATE) [Concomitant]
  8. CYMBALTA (DULOXETINE HYDROCHLORIDE) [Concomitant]
  9. ETODOLAC [Concomitant]
  10. LANSOPRAZOLE [Concomitant]
  11. VICODIN (HYDROCODONE BITARTRATE, PARACETAMOL) [Concomitant]
  12. LISINOPRIL AND HYDROCHLOROTHIAZIDE [Concomitant]

REACTIONS (1)
  - Pancreatitis [None]
